FAERS Safety Report 22267234 (Version 1)
Quarter: 2023Q2

REPORT INFORMATION
  Report Type: Spontaneous
  Country: US (occurrence: US)
  Receive Date: 20230428
  Receipt Date: 20230428
  Transmission Date: 20230721
  Serious: Yes (Death)
  Sender: FDA-Public Use
  Company Number: US-SHIONOGI, INC-2023000982

PATIENT
  Age: 72 Year
  Sex: Male

DRUGS (11)
  1. FETROJA [Suspect]
     Active Substance: CEFIDEROCOL SULFATE TOSYLATE
     Indication: Acinetobacter infection
     Dosage: 0.75 G, 12 HOUR, 4.9 DAYS
     Route: 065
  2. FETROJA [Suspect]
     Active Substance: CEFIDEROCOL SULFATE TOSYLATE
     Indication: Pneumonia
  3. LEVOFLOXACIN [Concomitant]
     Active Substance: LEVOFLOXACIN
     Indication: Acinetobacter infection
     Route: 065
  4. LEVOFLOXACIN [Concomitant]
     Active Substance: LEVOFLOXACIN
     Indication: Pneumonia
  5. LEVOFLOXACIN [Concomitant]
     Active Substance: LEVOFLOXACIN
     Indication: Pathogen resistance
  6. COLISTIN [Concomitant]
     Active Substance: COLISTIN
     Indication: Acinetobacter infection
     Route: 065
  7. COLISTIN [Concomitant]
     Active Substance: COLISTIN
     Indication: Pneumonia
  8. COLISTIN [Concomitant]
     Active Substance: COLISTIN
     Indication: Pathogen resistance
  9. TIGECYCLINE [Concomitant]
     Active Substance: TIGECYCLINE
     Indication: Acinetobacter infection
     Route: 065
  10. TIGECYCLINE [Concomitant]
     Active Substance: TIGECYCLINE
     Indication: Pneumonia
  11. TIGECYCLINE [Concomitant]
     Active Substance: TIGECYCLINE
     Indication: Pathogen resistance

REACTIONS (1)
  - Death [Fatal]
